FAERS Safety Report 16893556 (Version 1)
Quarter: 2019Q4

REPORT INFORMATION
  Report Type: Spontaneous
  Country: DE (occurrence: DE)
  Receive Date: 20191008
  Receipt Date: 20191008
  Transmission Date: 20200122
  Serious: Yes (Other)
  Sender: FDA-Public Use
  Company Number: DE-ASTELLAS-2019US039283

PATIENT
  Age: 75 Year
  Sex: Male

DRUGS (3)
  1. XTANDI [Suspect]
     Active Substance: ENZALUTAMIDE
     Indication: PRODUCT USED FOR UNKNOWN INDICATION
     Dosage: 160 MG (40 MG, 4 TABLETS), ONCE DAILY
     Route: 065
     Dates: start: 2018
  2. BISOPROLOL [Concomitant]
     Active Substance: BISOPROLOL
     Indication: DEHYDRATION
     Dosage: UNK UNK, UNKNOWN FREQ.
     Route: 065
  3. MAGNESIUM [Concomitant]
     Active Substance: MAGNESIUM
     Indication: PRODUCT USED FOR UNKNOWN INDICATION
     Dosage: UNK UNK, UNKNOWN FREQ.
     Route: 065

REACTIONS (5)
  - Night sweats [Unknown]
  - Mobility decreased [Unknown]
  - Metastases to bone [Unknown]
  - Arthralgia [Unknown]
  - Prostatic specific antigen increased [Unknown]
